FAERS Safety Report 24300803 (Version 4)
Quarter: 2024Q4

REPORT INFORMATION
  Report Type: Report from Study
  Country: CA (occurrence: CA)
  Receive Date: 20240910
  Receipt Date: 20241010
  Transmission Date: 20250115
  Serious: Yes (Other)
  Sender: Unknown Manufacturer
  Company Number: CA-MTPC-MTDA2024-0018944

PATIENT
  Sex: Male

DRUGS (8)
  1. RADICAVA ORS [Suspect]
     Active Substance: EDARAVONE
     Indication: Amyotrophic lateral sclerosis
     Dosage: UNK
     Route: 048
     Dates: start: 20240722
  2. RADICAVA ORS [Suspect]
     Active Substance: EDARAVONE
     Indication: Amyotrophic lateral sclerosis
     Dosage: UNK
     Route: 048
     Dates: start: 20240722
  3. RADICAVA ORS [Suspect]
     Active Substance: EDARAVONE
     Dosage: UNK, 10 DAYS OUT OF 14 ON, 14 OFF
     Route: 048
     Dates: start: 20240918, end: 20240924
  4. RADICAVA ORS [Suspect]
     Active Substance: EDARAVONE
     Dosage: UNK, 10 DAYS OUT OF 14 ON, 14 OFF
     Route: 048
     Dates: start: 20240918, end: 20240924
  5. RADICAVA ORS [Suspect]
     Active Substance: EDARAVONE
     Dosage: MAINTENANCE CYCLE (10 DAYS OUT OF 14 ON, 14 OFF)
     Route: 048
  6. RADICAVA ORS [Suspect]
     Active Substance: EDARAVONE
     Dosage: MAINTENANCE CYCLE (10 DAYS OUT OF 14 ON, 14 OFF)
     Route: 048
  7. RILUZOLE [Suspect]
     Active Substance: RILUZOLE
     Indication: Product used for unknown indication
     Dosage: UNK
     Route: 065
     Dates: start: 20240304, end: 20240905
  8. OXAZEPAM [Concomitant]
     Active Substance: OXAZEPAM
     Indication: Product used for unknown indication
     Dosage: UNK
     Route: 065
     Dates: start: 202403

REACTIONS (4)
  - Skin exfoliation [Recovering/Resolving]
  - Acne [Recovering/Resolving]
  - Pruritus [Recovering/Resolving]
  - Condition aggravated [Unknown]
